FAERS Safety Report 11195031 (Version 2)
Quarter: 2015Q3

REPORT INFORMATION
  Report Type: Spontaneous
  Country: GR (occurrence: GR)
  Receive Date: 20150617
  Receipt Date: 20150722
  Transmission Date: 20151125
  Serious: Yes (Other)
  Sender: FDA-Public Use
  Company Number: GR-AUROBINDO-AUR-APL-2015-05013

PATIENT
  Age: 36 Year
  Sex: Female

DRUGS (2)
  1. TOPIRAMATE 25MG [Suspect]
     Active Substance: TOPIRAMATE
     Indication: MIGRAINE
     Dosage: 100 MG, DAILY
     Route: 065
  2. TOPIRAMATE 25MG [Suspect]
     Active Substance: TOPIRAMATE
     Indication: PROPHYLAXIS
     Dosage: 25 MG, DAILY
     Route: 065

REACTIONS (22)
  - Iris atrophy [Unknown]
  - Iris adhesions [Unknown]
  - Uveitis [Recovered/Resolved]
  - Angle closure glaucoma [Recovered/Resolved]
  - Mydriasis [Recovered/Resolved]
  - Visual acuity reduced [Recovered/Resolved]
  - Corneal oedema [Recovered/Resolved]
  - Iridocyclitis [Unknown]
  - Conjunctival oedema [Recovered/Resolved]
  - Intraocular pressure decreased [Recovered/Resolved]
  - Photophobia [Not Recovered/Not Resolved]
  - Vision blurred [Recovered/Resolved]
  - Cataract [Unknown]
  - Choroidal effusion [Unknown]
  - Corneal thickening [Recovered/Resolved]
  - Headache [Recovered/Resolved]
  - Vomiting [Recovered/Resolved]
  - Condition aggravated [Recovered/Resolved]
  - Lacrimation increased [Recovered/Resolved]
  - Ciliary hyperaemia [Recovered/Resolved]
  - Eyelid oedema [Recovered/Resolved]
  - Choroidal effusion [Recovered/Resolved]
